FAERS Safety Report 8737498 (Version 2)
Quarter: 2013Q4

REPORT INFORMATION
  Report Type: Spontaneous
  Country: JP (occurrence: JP)
  Receive Date: 20120822
  Receipt Date: 20131031
  Transmission Date: 20140711
  Serious: Yes (Other)
  Sender: FDA-Public Use
  Company Number: JP-009507513-1208JPN000290

PATIENT
  Age: 52 Year
  Sex: Female

DRUGS (1)
  1. SINGULAIR TABLETS 5MG [Suspect]
     Indication: ASTHMA
     Dosage: DOSAGE U DURING A DAY
     Route: 048

REACTIONS (1)
  - Allergic granulomatous angiitis [Unknown]
